FAERS Safety Report 26028260 (Version 1)
Quarter: 2025Q4

REPORT INFORMATION
  Report Type: Spontaneous
  Country: US (occurrence: US)
  Receive Date: 20251111
  Receipt Date: 20251111
  Transmission Date: 20260118
  Serious: No
  Sender: Alora Pharma
  Company Number: US-ACELLA PHARMACEUTICALS, LLC-2025ALO02137

PATIENT
  Sex: Female

DRUGS (3)
  1. CICLOPIROX [Suspect]
     Active Substance: CICLOPIROX
     Dosage: UNK; REMOVED AFTER 7 DAYS WITH ALCOHOL AND THEN REAPPLIED.
     Dates: end: 2025
  2. CLONIDINE [Concomitant]
     Active Substance: CLONIDINE
  3. LISINOPRIL [Concomitant]
     Active Substance: LISINOPRIL

REACTIONS (5)
  - Hypertension [Recovered/Resolved]
  - Fall [Recovered/Resolved]
  - Balance disorder [Recovered/Resolved]
  - Product residue present [Not Recovered/Not Resolved]
  - Product quality issue [Not Recovered/Not Resolved]
